FAERS Safety Report 9532291 (Version 5)
Quarter: 2014Q1

REPORT INFORMATION
  Report Type: Report from Study
  Country: IL (occurrence: IL)
  Receive Date: 20130918
  Receipt Date: 20140320
  Transmission Date: 20141002
  Serious: Yes (Hospitalization)
  Sender: FDA-Public Use
  Company Number: IL-BAYER-2013-051444

PATIENT
  Age: 83 Year
  Sex: Male
  Weight: 81 kg

DRUGS (7)
  1. ALPHARADIN [Suspect]
     Indication: PROSTATE CANCER
     Dosage: 4142 KBQ, ONCE
     Dates: start: 20130411, end: 20130411
  2. AMLODIPINE [Concomitant]
     Indication: HYPERTENSION
     Dosage: DAILY DOSE 5 MG
     Route: 048
  3. ASPIRIN [Concomitant]
     Indication: MYOCARDIAL ISCHAEMIA
     Dosage: DAILY DOSE 75 MG
     Route: 048
  4. SYMBICORT [Concomitant]
     Indication: ASTHMA
     Dosage: DAILY DOSE 5 ?G, INHALATION
     Route: 055
     Dates: start: 2008
  5. SPIRIVA [Concomitant]
     Indication: ASTHMA
     Dosage: DAILY DOSE 18 ?G, INHALATION
     Route: 055
     Dates: start: 2008
  6. LOSEC [Concomitant]
     Indication: NAUSEA
     Dosage: DAILY DOSE 20 MG
     Route: 048
     Dates: start: 201304
  7. CLEXANE [Concomitant]
     Indication: PROPHYLAXIS
     Dosage: DAILY DOSE 40 MG
     Route: 058
     Dates: start: 201304

REACTIONS (1)
  - Pneumonitis [Recovered/Resolved]
